FAERS Safety Report 9373343 (Version 3)
Quarter: 2013Q3

REPORT INFORMATION
  Report Type: Spontaneous
  Country: JP (occurrence: JP)
  Receive Date: 20130627
  Receipt Date: 20130722
  Transmission Date: 20140515
  Serious: Yes (Other)
  Sender: FDA-Public Use
  Company Number: JP-GLAXOSMITHKLINE-B0902562A

PATIENT
  Age: 76 Year
  Sex: Female

DRUGS (5)
  1. REQUIP [Suspect]
     Indication: PARKINSON^S DISEASE
     Dosage: 8MG PER DAY
     Route: 048
     Dates: start: 20130220, end: 20130611
  2. REQUIP [Suspect]
     Indication: PARKINSON^S DISEASE
     Route: 048
     Dates: start: 20130612
  3. MADOPAR [Concomitant]
     Indication: PARKINSON^S DISEASE
     Dosage: 100MG THREE TIMES PER DAY
     Route: 048
     Dates: start: 201201
  4. PLETAAL [Concomitant]
     Indication: CEREBRAL THROMBOSIS
     Dosage: 50MG TWICE PER DAY
     Route: 048
     Dates: start: 201201
  5. LOCHOL [Concomitant]
     Indication: HYPERLIPIDAEMIA
     Dosage: 30MG PER DAY
     Route: 048
     Dates: start: 201201

REACTIONS (2)
  - Sudden onset of sleep [Recovered/Resolved]
  - Fall [Unknown]
